FAERS Safety Report 20121324 (Version 1)
Quarter: 2021Q4

REPORT INFORMATION
  Report Type: Spontaneous
  Country: US (occurrence: US)
  Receive Date: 20211127
  Receipt Date: 20211127
  Transmission Date: 20220303
  Serious: No
  Sender: FDA-Public Use
  Company Number: US-GSKCCFUS-Case-01227346_AE-71931

PATIENT
  Age: 68 Year
  Sex: Female

DRUGS (1)
  1. NUCALA [Suspect]
     Active Substance: MEPOLIZUMAB
     Indication: Product used for unknown indication
     Dosage: UNK
     Route: 042
     Dates: start: 202109

REACTIONS (3)
  - Myalgia [Unknown]
  - Muscle tightness [Unknown]
  - Fatigue [Unknown]

NARRATIVE: CASE EVENT DATE: 20210901
